FAERS Safety Report 5903375-7 (Version None)
Quarter: 2008Q3

REPORT INFORMATION
  Report Type: 
  Country: None (occurrence: None)
  Receive Date: 20080930
  Receipt Date: 20080924
  Transmission Date: 20090109
  Serious: Yes (Other)
  Sender: FDA-Public Use
  Company Number: US-ASTRAZENECA-2008UW20108

PATIENT
  Age: 70 Year
  Sex: Female

DRUGS (17)
  1. ARIMIDEX [Suspect]
     Indication: BREAST CANCER FEMALE
     Route: 048
     Dates: start: 20080301
  2. NOVOLOG [Concomitant]
  3. ALANTIS [Concomitant]
  4. NITROGLYCERIN [Concomitant]
  5. GEMFIBROZIL [Concomitant]
  6. SIMVASTIN [Concomitant]
  7. COZAAR [Concomitant]
  8. CLONIDINE [Concomitant]
  9. LEVOTHROID [Concomitant]
  10. ASPIRIN [Concomitant]
  11. EXPERIA [Concomitant]
  12. CALCIUM [Concomitant]
  13. VITAMIN D [Concomitant]
  14. ALLOPURINOL [Concomitant]
  15. ATENOLOL/CHLORTALIDONE [Concomitant]
  16. FUROSEMIDE [Concomitant]
  17. SULFAMETHOXALE/TRIMETHOPRIM [Concomitant]

REACTIONS (3)
  - ARTHRALGIA [None]
  - DEPRESSION [None]
  - SUICIDAL IDEATION [None]
